FAERS Safety Report 26061186 (Version 3)
Quarter: 2025Q4

REPORT INFORMATION
  Report Type: Report from Study
  Country: IN (occurrence: IN)
  Receive Date: 20251118
  Receipt Date: 20251222
  Transmission Date: 20260118
  Serious: Yes (Other)
  Sender: INCYTE
  Company Number: IN-002147023-NVSC2025IN103139

PATIENT
  Age: 49 Year
  Weight: 56.9 kg

DRUGS (2)
  1. RUXOLITINIB [Suspect]
     Active Substance: RUXOLITINIB
     Indication: Myelofibrosis
     Dosage: 5 MG, BID
     Route: 061
  2. RUXOLITINIB [Suspect]
     Active Substance: RUXOLITINIB
     Indication: Polycythaemia vera
     Dosage: 5 MG, QD
     Route: 061

REACTIONS (37)
  - Haemoglobin decreased [Unknown]
  - Haemoglobin abnormal [Unknown]
  - Pyrexia [Unknown]
  - Mouth ulceration [Unknown]
  - Pallor [Unknown]
  - Abdominal pain [Unknown]
  - Pain [Unknown]
  - Full blood count abnormal [Unknown]
  - Blood creatinine abnormal [Unknown]
  - Blood calcium abnormal [Unknown]
  - Blood potassium abnormal [Unknown]
  - Spleen disorder [Unknown]
  - White blood cell count abnormal [Unknown]
  - Platelet count abnormal [Unknown]
  - Neutrophil count abnormal [Unknown]
  - Blood bilirubin abnormal [Unknown]
  - Aspartate aminotransferase abnormal [Unknown]
  - Blood albumin abnormal [Unknown]
  - Blood urea abnormal [Unknown]
  - Blood sodium abnormal [Unknown]
  - Alanine aminotransferase abnormal [Unknown]
  - Headache [Unknown]
  - Hepatosplenomegaly [Unknown]
  - Obstructive airways disorder [Unknown]
  - Abdominal distension [Unknown]
  - Fatigue [Unknown]
  - Nucleated red cells [Unknown]
  - Red blood cell count abnormal [Unknown]
  - Haematocrit decreased [Unknown]
  - Red cell distribution width increased [Unknown]
  - Asthenia [Unknown]
  - Investigation abnormal [Unknown]
  - Blood uric acid abnormal [Unknown]
  - Pruritus [Unknown]
  - Body mass index increased [Unknown]
  - Vision blurred [Unknown]
  - Off label use [Unknown]
